FAERS Safety Report 14122505 (Version 2)
Quarter: 2017Q4

REPORT INFORMATION
  Report Type: Spontaneous
  Country: US (occurrence: US)
  Receive Date: 20171024
  Receipt Date: 20171110
  Transmission Date: 20180321
  Serious: Yes (Other)
  Sender: FDA-Public Use
  Company Number: US-ACTELION-A-NJ2017-161175

PATIENT
  Age: 55 Year
  Sex: Female

DRUGS (6)
  1. VELETRI [Suspect]
     Active Substance: EPOPROSTENOL
     Indication: PULMONARY HYPERTENSION
     Route: 042
  2. REMODULIN [Suspect]
     Active Substance: TREPROSTINIL
     Indication: PULMONARY HYPERTENSION
     Dosage: 12 NG, PER MIN
     Route: 042
     Dates: start: 20170810
  3. REMODULIN [Suspect]
     Active Substance: TREPROSTINIL
     Dosage: 18 NG, PER MIN
     Route: 042
  4. REMODULIN [Suspect]
     Active Substance: TREPROSTINIL
     Dosage: 32 NG, PER MIN
     Route: 042
  5. AMBRISENTAN [Suspect]
     Active Substance: AMBRISENTAN
     Indication: PULMONARY HYPERTENSION
     Dosage: 5 MG, QD
     Route: 048
     Dates: start: 20170815
  6. REVATIO [Concomitant]
     Active Substance: SILDENAFIL CITRATE

REACTIONS (17)
  - Sputum discoloured [Not Recovered/Not Resolved]
  - Nasal discharge discolouration [Not Recovered/Not Resolved]
  - Secretion discharge [Not Recovered/Not Resolved]
  - Dyspnoea [Unknown]
  - Malaise [Not Recovered/Not Resolved]
  - Flushing [Recovering/Resolving]
  - Central venous catheterisation [Unknown]
  - Headache [Recovering/Resolving]
  - Abdominal discomfort [Recovering/Resolving]
  - Liver function test abnormal [Unknown]
  - Productive cough [Not Recovered/Not Resolved]
  - Oedema [Not Recovered/Not Resolved]
  - Sinus congestion [Not Recovered/Not Resolved]
  - Faeces soft [Unknown]
  - Influenza like illness [Not Recovered/Not Resolved]
  - Fatigue [Recovering/Resolving]
  - Back pain [Not Recovered/Not Resolved]

NARRATIVE: CASE EVENT DATE: 201708
